FAERS Safety Report 18818564 (Version 1)
Quarter: 2021Q1

REPORT INFORMATION
  Report Type: Spontaneous
  Country: DE (occurrence: DE)
  Receive Date: 20210201
  Receipt Date: 20210201
  Transmission Date: 20210419
  Serious: Yes (Hospitalization)
  Sender: FDA-Public Use
  Company Number: DE-MYLANLABS-2021M1005291

PATIENT
  Age: 85 Year
  Sex: Female

DRUGS (10)
  1. APIXABAN [Suspect]
     Active Substance: APIXABAN
     Indication: PRODUCT USED FOR UNKNOWN INDICATION
     Dosage: 5 MILLIGRAM (5 MG, 1?0?1?0, TABLETS)
  2. NALOXONE HYDROCHLORIDE W/TILIDINE HYDROCHLORI [Concomitant]
     Active Substance: NALOXONE HYDROCHLORIDE\TILIDINE HYDROCHLORIDE
     Dosage: UNK (4|50 MG, 0?0?0?1, PROLONGED?RELEASE TABLET)
  3. XIPAMIDE MYLAN [Suspect]
     Active Substance: XIPAMIDE
     Indication: PRODUCT USED FOR UNKNOWN INDICATION
     Dosage: 10 MILLIGRAM (10 MG, 0?1?0?0, TABLETS)
  4. METOPROLOL. [Concomitant]
     Active Substance: METOPROLOL
     Dosage: 23.75 MILLIGRAM (23.75 MG, 1?0?1?0, PROLONGED?RELEASE TABLET)
  5. ATORVASTATIN [Concomitant]
     Active Substance: ATORVASTATIN
     Dosage: 40 MILLIGRAM (40 MG, 0?0?1?0, TABLET)
  6. DAPSON?FATOL [Suspect]
     Active Substance: DAPSONE
     Indication: PRODUCT USED FOR UNKNOWN INDICATION
     Dosage: 50 MILLIGRAM (50 MG, 0?0?1?0, TABLETS)
  7. MOVICOL [Concomitant]
     Active Substance: POLYETHYLENE GLYCOL 3350\POTASSIUM CHLORIDE\SODIUM BICARBONATE\SODIUM CHLORIDE
     Dosage: UNK (0?0?1?0, BEUTEL/PULVER)
  8. TORASEMIDE [Suspect]
     Active Substance: TORSEMIDE
     Indication: PRODUCT USED FOR UNKNOWN INDICATION
     Dosage: 10 MILLIGRAM (10 MG, 1?0?0.5?0, TABLETS)
  9. GLYCILAX [Concomitant]
     Active Substance: GLYCERIN
     Dosage: UNK (0?0?2?0, SUPPOSITORY )
     Route: 054
  10. LEVOTHYROXINE                      /00068002/ [Concomitant]
     Active Substance: LEVOTHYROXINE
     Dosage: 112 MICROGRAM (112 ?G, 1?0?0?0, TABLETS)

REACTIONS (4)
  - Haematochezia [Unknown]
  - Faecaloma [Unknown]
  - Diarrhoea [Unknown]
  - Electrolyte imbalance [Unknown]
